FAERS Safety Report 5215259-0 (Version None)
Quarter: 2007Q1

REPORT INFORMATION
  Report Type: 
  Country: None (occurrence: None)
  Receive Date: 20061122
  Receipt Date: 20060116
  Transmission Date: 20070707
  Serious: Yes (Other)
  Sender: FDA-Public Use
  Company Number: HQWYE383217JAN06

PATIENT
  Age: 55 Year
  Sex: Female
  Weight: 149.37 kg

DRUGS (10)
  1. ZOSYN [Suspect]
     Indication: ARTHRITIS BACTERIAL
     Dosage: 2.25 G 1X PER 8 HR, INTRAVENOUS
     Route: 042
     Dates: start: 20060101
  2. LEXAPRO [Concomitant]
  3. INSULIN (INSULIN) [Concomitant]
  4. PLAVIX [Concomitant]
  5. NEURONTIN [Concomitant]
  6. METOPROLOL TARTRATE [Concomitant]
  7. SENOKOT [Concomitant]
  8. ALBUTEROL [Concomitant]
  9. PROTONIX [Concomitant]
  10. HEPARIN [Concomitant]

REACTIONS (2)
  - ALANINE AMINOTRANSFERASE INCREASED [None]
  - ASPARTATE AMINOTRANSFERASE INCREASED [None]
